FAERS Safety Report 10449177 (Version 2)
Quarter: 2014Q4

REPORT INFORMATION
  Report Type: Spontaneous
  Country: US (occurrence: US)
  Receive Date: 20140912
  Receipt Date: 20141001
  Transmission Date: 20150528
  Serious: Yes (Other)
  Sender: FDA-Public Use
  Company Number: US-BEH-2014044902

PATIENT
  Age: 52 Year
  Sex: Male

DRUGS (1)
  1. HIZENTRA [Suspect]
     Active Substance: HUMAN IMMUNOGLOBULIN G
     Indication: HYPOGAMMAGLOBULINAEMIA

REACTIONS (2)
  - Fall [Not Recovered/Not Resolved]
  - Impaired work ability [Not Recovered/Not Resolved]

NARRATIVE: CASE EVENT DATE: 20140101
